FAERS Safety Report 19586935 (Version 1)
Quarter: 2021Q3

REPORT INFORMATION
  Report Type: Spontaneous
  Country: SE (occurrence: SE)
  Receive Date: 20210721
  Receipt Date: 20210721
  Transmission Date: 20211014
  Serious: Yes (Life-Threatening)
  Sender: FDA-Public Use
  Company Number: SE-BRISTOL-MYERS SQUIBB COMPANY-BMS-2021-069882

PATIENT
  Age: 79 Year
  Sex: Female

DRUGS (1)
  1. ELIQUIS [Suspect]
     Active Substance: APIXABAN
     Indication: CEREBROVASCULAR ACCIDENT PROPHYLAXIS
     Dosage: 10 MG PER DAY
     Route: 065
     Dates: end: 20210519

REACTIONS (7)
  - Rash [Recovering/Resolving]
  - General physical health deterioration [Recovering/Resolving]
  - Skin ulcer [Recovering/Resolving]
  - Dyspnoea [Recovering/Resolving]
  - Overdose [Recovering/Resolving]
  - Pain [Recovering/Resolving]
  - Renal disorder [Recovering/Resolving]

NARRATIVE: CASE EVENT DATE: 2016
